FAERS Safety Report 10551006 (Version 1)
Quarter: 2014Q4

REPORT INFORMATION
  Report Type: Spontaneous
  Country: US (occurrence: None)
  Receive Date: 20141028
  Receipt Date: 20141028
  Transmission Date: 20150529
  Serious: No
  Sender: FDA-Public Use
  Company Number: None

PATIENT
  Age: 33 Year
  Sex: Female
  Weight: 49.9 kg

DRUGS (2)
  1. GABAPENTIN 100 MG FP1556072 [Suspect]
     Active Substance: GABAPENTIN
     Indication: NERVE INJURY
     Dosage: 3 TIMES 1 PILL
     Route: 048
     Dates: start: 20141024, end: 20141027
  2. GABAPENTIN 100 MG FP1556072 [Suspect]
     Active Substance: GABAPENTIN
     Indication: DENTAL IMPLANTATION
     Dosage: 3 TIMES 1 PILL
     Route: 048
     Dates: start: 20141024, end: 20141027

REACTIONS (1)
  - Toothache [None]

NARRATIVE: CASE EVENT DATE: 20141022
